FAERS Safety Report 5832604-3 (Version None)
Quarter: 2008Q3

REPORT INFORMATION
  Report Type: 
  Country: None (occurrence: None)
  Receive Date: 20080804
  Receipt Date: 20080723
  Transmission Date: 20090109
  Serious: No
  Sender: FDA-Public Use
  Company Number: JP-PFIZER INC-2008061175

PATIENT
  Sex: Male

DRUGS (6)
  1. MIGLITOL TABLET [Suspect]
     Indication: DIABETES MELLITUS
     Dosage: DAILY DOSE:150MG
     Route: 048
     Dates: start: 20080512, end: 20080610
  2. LONGES [Concomitant]
     Indication: HYPERTENSION
     Route: 048
  3. BUFFERIN [Concomitant]
     Indication: ANGINA PECTORIS
     Route: 048
  4. AMARYL [Concomitant]
     Indication: DIABETES MELLITUS
     Route: 048
     Dates: start: 20041126
  5. MELBIN [Concomitant]
     Indication: DIABETES MELLITUS
     Route: 048
     Dates: start: 20060120
  6. CRESTOR [Concomitant]
     Indication: HYPERLIPIDAEMIA
     Route: 048
     Dates: start: 20070904

REACTIONS (1)
  - HEPATIC FUNCTION ABNORMAL [None]
